FAERS Safety Report 4667280-9 (Version None)
Quarter: 2005Q2

REPORT INFORMATION
  Report Type: 
  Country: None (occurrence: None)
  Receive Date: 20050421
  Receipt Date: 20050303
  Transmission Date: 20051028
  Serious: No
  Sender: FDA-Public Use
  Company Number: 2005045176

PATIENT
  Sex: 0

DRUGS (4)
  1. INSPRA [Suspect]
     Indication: ILL-DEFINED DISORDER
  2. BUMETANIDE [Concomitant]
  3. ACE INHIBITOR NOS (ACE INHIBITOR NOS) [Concomitant]
  4. ATENOLOL [Concomitant]

REACTIONS (1)
  - WEIGHT DECREASED [None]
